FAERS Safety Report 7030077-9 (Version None)
Quarter: 2010Q4

REPORT INFORMATION
  Report Type: 
  Country: None (occurrence: None)
  Receive Date: 20101006
  Receipt Date: 20100928
  Transmission Date: 20110411
  Serious: Yes (Death, Hospitalization)
  Sender: FDA-Public Use
  Company Number: CA-PFIZER INC-2010070039

PATIENT
  Age: 79 Year
  Sex: Female

DRUGS (7)
  1. LIPITOR [Suspect]
     Dosage: 20 MG, 1X/DAY
     Route: 048
     Dates: start: 20010101
  2. EXELON [Suspect]
     Dosage: 3 MG OR 6 MG, 2X/DAY
     Route: 048
     Dates: start: 20010101
  3. ACETYLSALICYLIC ACID [Concomitant]
     Dosage: 81 MG, 1X/DAY
     Route: 048
  4. ATIVAN [Concomitant]
     Dosage: 0.5 MG, AS NEEDED
     Route: 060
     Dates: start: 20010101
  5. MEPERIDINE HCL [Concomitant]
     Dosage: 25 MG, EVERY 4 HOURS, AS NEEDED
     Route: 042
     Dates: start: 20010101
  6. PAXIL [Concomitant]
     Dosage: 10 MG, 1X/DAY
     Route: 048
     Dates: start: 20010101
  7. SYNTHROID [Concomitant]
     Dosage: 100 UG, 1X/DAY
     Dates: start: 20010101

REACTIONS (10)
  - CEREBROVASCULAR DISORDER [None]
  - COUGH [None]
  - DISORIENTATION [None]
  - DYSPHAGIA [None]
  - ELECTROLYTE IMBALANCE [None]
  - HAEMOGLOBIN DECREASED [None]
  - HYPOTENSION [None]
  - LEUKOPENIA [None]
  - PETECHIAE [None]
  - PLATELET PRODUCTION DECREASED [None]
